FAERS Safety Report 24661413 (Version 2)
Quarter: 2024Q4

REPORT INFORMATION
  Report Type: Spontaneous
  Country: US (occurrence: US)
  Receive Date: 20241125
  Receipt Date: 20241202
  Transmission Date: 20250115
  Serious: Yes (Hospitalization)
  Sender: PFIZER
  Company Number: US-MLMSERVICE-20241115-PI255230-00099-2

PATIENT
  Age: 73 Year
  Sex: Male

DRUGS (6)
  1. CYTARABINE [Suspect]
     Active Substance: CYTARABINE
     Indication: Acute myeloid leukaemia
     Dosage: UNK
  2. CIPROFLOXACIN [Suspect]
     Active Substance: CIPROFLOXACIN
     Indication: Antibiotic prophylaxis
     Dosage: 500 MG, 2X/DAY EVERY 12 HOURS
     Route: 048
  3. DAUNORUBICIN [Suspect]
     Active Substance: DAUNORUBICIN
     Indication: Acute myeloid leukaemia
     Dosage: UNK
  4. GILTERITINIB [Suspect]
     Active Substance: GILTERITINIB
     Indication: Acute myeloid leukaemia
     Dosage: UNK
  5. ACYCLOVIR [Concomitant]
     Active Substance: ACYCLOVIR
     Indication: Antiviral prophylaxis
     Dosage: 800 MG EVERY 12 HOURS
     Route: 048
  6. MICAFUNGIN [Concomitant]
     Active Substance: MICAFUNGIN SODIUM
     Indication: Antifungal prophylaxis
     Dosage: 100 MG, 1X/DAY
     Route: 042

REACTIONS (7)
  - Enterococcal bacteraemia [Recovered/Resolved]
  - Capnocytophaga infection [Recovered/Resolved]
  - Bacteraemia [Recovered/Resolved]
  - Mouth ulceration [Recovered/Resolved]
  - Febrile neutropenia [Recovered/Resolved]
  - Catheter site infection [Recovered/Resolved]
  - Corynebacterium bacteraemia [Recovered/Resolved]
